FAERS Safety Report 4527173-4 (Version None)
Quarter: 2004Q4

REPORT INFORMATION
  Report Type: 
  Country: None (occurrence: None)
  Receive Date: 20041126
  Receipt Date: 20041014
  Transmission Date: 20050328
  Serious: Yes (Other)
  Sender: FDA-Public Use
  Company Number: 2004236502US

PATIENT
  Sex: Male

DRUGS (2)
  1. ZYVOX [Suspect]
     Indication: ENDOCARDITIS
     Dosage: 600 MG, BID, ORAL
     Route: 048
  2. BETA 2 AGONIST (UNSPECIFIED) [Concomitant]

REACTIONS (1)
  - LACTIC ACIDOSIS [None]
